FAERS Safety Report 10978328 (Version 3)
Quarter: 2015Q2

REPORT INFORMATION
  Report Type: Other
  Country: JP (occurrence: JP)
  Receive Date: 20150402
  Receipt Date: 20150521
  Transmission Date: 20150821
  Serious: Yes (Death, Hospitalization)
  Sender: FDA-Public Use
  Company Number: JP-DSJP-DSJ-2015-110129

PATIENT

DRUGS (5)
  1. OLMETEC [Suspect]
     Active Substance: OLMESARTAN MEDOXOMIL
     Indication: HYPERTENSION
     Dosage: 10MG/?
     Route: 065
     Dates: start: 201208, end: 201208
  2. RANITAC [Concomitant]
     Indication: GASTRITIS PROPHYLAXIS
     Dosage: 150 MG, BID
     Route: 048
     Dates: start: 20120903, end: 20121005
  3. BAYASPIRIN [Concomitant]
     Active Substance: ASPIRIN
     Indication: CEREBRAL INFARCTION
     Dosage: 100 MG, QD
     Route: 048
     Dates: start: 20120903, end: 20121003
  4. OLMETEC [Suspect]
     Active Substance: OLMESARTAN MEDOXOMIL
     Dosage: 20 MG, QD
     Route: 048
     Dates: start: 201208, end: 20121005
  5. PLETAAL [Concomitant]
     Active Substance: CILOSTAZOL
     Indication: CEREBRAL INFARCTION
     Dosage: 100 MG, BID
     Route: 048
     Dates: start: 20120903, end: 20121005

REACTIONS (5)
  - Sepsis [Fatal]
  - Pyrexia [Recovering/Resolving]
  - Oropharyngeal discomfort [Recovering/Resolving]
  - Papule [Not Recovered/Not Resolved]
  - Drug reaction with eosinophilia and systemic symptoms [Fatal]

NARRATIVE: CASE EVENT DATE: 20120921
